FAERS Safety Report 4794414-8 (Version None)
Quarter: 2005Q4

REPORT INFORMATION
  Report Type: 
  Country: None (occurrence: None)
  Receive Date: 20051011
  Receipt Date: 20050922
  Transmission Date: 20060501
  Serious: Yes (Hospitalization)
  Sender: FDA-Public Use
  Company Number: GB-ROCHE-418528

PATIENT
  Age: 57 Year
  Sex: Male
  Weight: 84 kg

DRUGS (8)
  1. CAPECITABINE [Suspect]
     Dosage: INTERMITTENT THERAPY OF TWO WEEKS ON AND ONE WEEK OFF, 21 DAY CYCLE.
     Route: 048
     Dates: start: 20050302, end: 20050907
  2. BEVACIZUMAB [Suspect]
     Route: 042
     Dates: start: 20050302
  3. ACETAMINOPHEN W/ CODEINE [Concomitant]
     Dosage: DAILY DOSE: 8/500 MG.
     Dates: start: 20050922
  4. RANITIDINE [Concomitant]
     Dates: start: 20050407
  5. WARFARIN SODIUM [Concomitant]
     Dates: start: 20050315
  6. AMITRIPTYLINE HCL [Concomitant]
     Dates: start: 20050915
  7. BENDROFLUAZIDE [Concomitant]
     Dates: start: 20050912
  8. ATENOLOL [Concomitant]
     Dates: start: 20050912

REACTIONS (1)
  - CELLULITIS [None]
